FAERS Safety Report 4758819-3 (Version None)
Quarter: 2005Q3

REPORT INFORMATION
  Report Type: 
  Country: None (occurrence: None)
  Receive Date: 20050901
  Receipt Date: 20050825
  Transmission Date: 20060218
  Serious: Yes (Other)
  Sender: FDA-Public Use
  Company Number: JP-MERCK-0508USA04448

PATIENT
  Age: 68 Year
  Sex: Female

DRUGS (1)
  1. CUPRIMINE [Suspect]
     Route: 048

REACTIONS (3)
  - APLASTIC ANAEMIA [None]
  - BONE MARROW DEPRESSION [None]
  - PANCYTOPENIA [None]
